FAERS Safety Report 7448120-1 (Version None)
Quarter: 2011Q2

REPORT INFORMATION
  Report Type: 
  Country: None (occurrence: None)
  Receive Date: 20110429
  Receipt Date: 20100430
  Transmission Date: 20111010
  Serious: Yes (Hospitalization)
  Sender: FDA-Public Use
  Company Number: US-ASTRAZENECA-2010SE06422

PATIENT
  Age: 28 Year
  Sex: Female
  Weight: 79.8 kg

DRUGS (2)
  1. NEXIUM [Suspect]
     Route: 048
  2. SPRINTEC [Concomitant]
     Indication: CONTRACEPTION

REACTIONS (3)
  - CHEST DISCOMFORT [None]
  - SWELLING FACE [None]
  - HYPERSENSITIVITY [None]
